FAERS Safety Report 10027384 (Version 2)
Quarter: 2014Q2

REPORT INFORMATION
  Report Type: Spontaneous
  Country: US (occurrence: US)
  Receive Date: 20140321
  Receipt Date: 20140429
  Transmission Date: 20141212
  Serious: No
  Sender: FDA-Public Use
  Company Number: US-009507513-1403USA009044

PATIENT
  Age: 37 Year
  Sex: Female
  Weight: 58.5 kg

DRUGS (1)
  1. CLARITIN-D-24 [Suspect]
     Indication: SEASONAL ALLERGY
     Dosage: 10 MG, ONCE
     Route: 048
     Dates: start: 20140309

REACTIONS (5)
  - Agitation [Unknown]
  - Anxiety [Recovered/Resolved]
  - Insomnia [Recovered/Resolved]
  - Crying [Unknown]
  - Energy increased [Unknown]
